FAERS Safety Report 21680236 (Version 4)
Quarter: 2023Q1

REPORT INFORMATION
  Report Type: Report from Study
  Country: CA (occurrence: CA)
  Receive Date: 20221205
  Receipt Date: 20230119
  Transmission Date: 20230418
  Serious: Yes (Other)
  Sender: FDA-Public Use
  Company Number: CA-LEO Pharma-347228

PATIENT
  Age: 58 Year
  Sex: Male

DRUGS (5)
  1. TRALOKINUMAB [Suspect]
     Active Substance: TRALOKINUMAB
     Indication: Dermatitis atopic
     Dosage: 600 MG SC LOADING DOSE
     Route: 058
     Dates: start: 20221101, end: 20221101
  2. TRALOKINUMAB [Suspect]
     Active Substance: TRALOKINUMAB
     Indication: Dermatitis atopic
     Dosage: 600 MG SC LOADING DOSE
     Route: 058
     Dates: start: 20221101, end: 20221101
  3. TRALOKINUMAB [Suspect]
     Active Substance: TRALOKINUMAB
     Indication: Dermatitis atopic
     Dosage: 300 MG SC Q2W 150 MG/ML PFS
     Route: 058
  4. TRALOKINUMAB [Suspect]
     Active Substance: TRALOKINUMAB
     Indication: Dermatitis atopic
     Dosage: 300 MG SC Q2W 150 MG/ML PFS
     Route: 058
  5. DEVICE [Suspect]
     Active Substance: DEVICE
     Indication: Dermatitis atopic

REACTIONS (8)
  - Feeling hot [Recovering/Resolving]
  - Rash erythematous [Unknown]
  - Fatigue [Unknown]
  - Feeling hot [Recovering/Resolving]
  - Skin exfoliation [Unknown]
  - Rash erythematous [Unknown]
  - Pruritus [Not Recovered/Not Resolved]
  - Dermatitis exfoliative generalised [Not Recovered/Not Resolved]

NARRATIVE: CASE EVENT DATE: 20221121
